FAERS Safety Report 4411773-6 (Version None)
Quarter: 2004Q3

REPORT INFORMATION
  Report Type: 
  Country: None (occurrence: None)
  Receive Date: 20040728
  Receipt Date: 20040713
  Transmission Date: 20050211
  Serious: Yes (Death)
  Sender: FDA-Public Use
  Company Number: USA040670382

PATIENT
  Age: 55 Year
  Sex: Male

DRUGS (5)
  1. CIALIS [Suspect]
     Dosage: 20 MG
  2. CAPTOPRIL (CAPTOPRIL BIOCHEMIE) [Concomitant]
  3. ALDACTONE [Concomitant]
  4. FUROSEMIDE [Concomitant]
  5. AMLODIPINE [Concomitant]

REACTIONS (1)
  - MYOCARDIAL INFARCTION [None]
